FAERS Safety Report 10052080 (Version 12)
Quarter: 2018Q3

REPORT INFORMATION
  Report Type: Report from Study
  Country: DE (occurrence: DE)
  Receive Date: 20140402
  Receipt Date: 20180830
  Transmission Date: 20181010
  Serious: Yes (Hospitalization, Other)
  Sender: FDA-Public Use
  Company Number: DE-ROCHE-1369629

PATIENT
  Sex: Female
  Weight: 63 kg

DRUGS (19)
  1. VENLAFAXIN [Concomitant]
     Active Substance: VENLAFAXINE HYDROCHLORIDE
     Indication: DEPRESSION
     Route: 048
     Dates: start: 20150211
  2. PACLITAXEL. [Concomitant]
     Active Substance: PACLITAXEL
     Dosage: SUBSEQUENTLY SAME DOSE ON 06/JAN/2014, 27/JAN/2014, 17/FEB/2014
     Route: 065
     Dates: start: 20131213, end: 20140310
  3. L?THYROXINE [Concomitant]
     Active Substance: LEVOTHYROXINE
     Indication: HYPOTHYROIDISM
     Route: 048
     Dates: start: 2013
  4. METOCLOPRAMIDE. [Concomitant]
     Active Substance: METOCLOPRAMIDE
     Route: 065
  5. ACC LONG [Concomitant]
     Active Substance: ACETYLCYSTEINE
     Indication: COUGH
     Route: 048
     Dates: start: 201404, end: 201404
  6. CARBOPLATIN. [Concomitant]
     Active Substance: CARBOPLATIN
     Route: 065
     Dates: start: 20140127, end: 20140127
  7. CARBOPLATIN. [Concomitant]
     Active Substance: CARBOPLATIN
     Route: 065
     Dates: start: 20131213, end: 20131213
  8. PACLITAXEL. [Concomitant]
     Active Substance: PACLITAXEL
     Route: 065
     Dates: start: 20131111, end: 20131111
  9. BEVACIZUMAB. [Suspect]
     Active Substance: BEVACIZUMAB
     Indication: OVARIAN CANCER
     Dosage: DATE OF LAST DOSE TAKEN PROIER TO ONSET OF SAE: 10/MAR/2014
     Route: 042
     Dates: start: 20131111, end: 20131111
  10. BEVACIZUMAB. [Suspect]
     Active Substance: BEVACIZUMAB
     Route: 042
     Dates: start: 20150210
  11. PANTOPRAZOLE [Concomitant]
     Active Substance: PANTOPRAZOLE
     Route: 048
     Dates: start: 20140106
  12. LOPEDIUM [Concomitant]
     Active Substance: LOPERAMIDE
     Route: 048
     Dates: start: 2014, end: 2014
  13. BEVACIZUMAB. [Suspect]
     Active Substance: BEVACIZUMAB
     Route: 042
     Dates: start: 20140626, end: 20140626
  14. KONAKION [Concomitant]
     Active Substance: PHYTONADIONE
     Route: 048
     Dates: start: 201404, end: 201404
  15. CARBOPLATIN. [Concomitant]
     Active Substance: CARBOPLATIN
     Route: 065
     Dates: start: 20140106, end: 20140106
  16. CARBOPLATIN. [Concomitant]
     Active Substance: CARBOPLATIN
     Route: 065
     Dates: start: 20140217, end: 20140217
  17. CARBOPLATIN. [Concomitant]
     Active Substance: CARBOPLATIN
     Route: 065
     Dates: start: 20140310, end: 20140310
  18. METOCLOPRAMIDE. [Concomitant]
     Active Substance: METOCLOPRAMIDE
     Indication: NAUSEA
     Dosage: 10 TROPFEN
     Route: 048
     Dates: start: 20131111, end: 201403
  19. CARBOPLATIN. [Concomitant]
     Active Substance: CARBOPLATIN
     Indication: OVARIAN CANCER
     Route: 065
     Dates: start: 20131111, end: 20131111

REACTIONS (10)
  - Impaired healing [Recovered/Resolved]
  - Ureteric stenosis [Recovered/Resolved]
  - Lymphocele [Recovered/Resolved]
  - General physical health deterioration [Unknown]
  - Seroma [Recovered/Resolved]
  - Urinary tract obstruction [Not Recovered/Not Resolved]
  - Hydronephrosis [Recovered/Resolved]
  - Pyrexia [Recovered/Resolved]
  - Anastomotic complication [Recovered/Resolved]
  - Lymphocele [Not Recovered/Not Resolved]

NARRATIVE: CASE EVENT DATE: 20140218
